FAERS Safety Report 10182545 (Version 1)
Quarter: 2014Q2

REPORT INFORMATION
  Report Type: Spontaneous
  Country: US (occurrence: None)
  Receive Date: 20140519
  Receipt Date: 20140519
  Transmission Date: 20141212
  Serious: No
  Sender: FDA-Public Use
  Company Number: None

PATIENT
  Age: 42 Year
  Sex: Female
  Weight: 68.04 kg

DRUGS (1)
  1. MIRVASO [Suspect]
     Indication: ROSACEA
     Dosage: APPLY ON SKIN OCNE DAILY APPLIED TO A SUFACE, USUALLY THE SKIN
     Dates: start: 20140101, end: 20140516

REACTIONS (1)
  - Erythema [None]
